FAERS Safety Report 20958568 (Version 1)
Quarter: 2022Q2

REPORT INFORMATION
  Report Type: Spontaneous
  Country: US (occurrence: US)
  Receive Date: 20220614
  Receipt Date: 20220614
  Transmission Date: 20220721
  Serious: No
  Sender: FDA-Public Use
  Company Number: US-MYLANLABS-2022M1043012

PATIENT
  Age: 55 Year
  Sex: Female
  Weight: 72.57 kg

DRUGS (1)
  1. ESTRADIOL TRANSDERMAL SYSTEM [Suspect]
     Active Substance: ESTRADIOL
     Indication: Hormone replacement therapy
     Dosage: 0.075 MILLIGRAM, QD (APPLIED TWICE A WEEK )
     Route: 062
     Dates: start: 20220524

REACTIONS (2)
  - Product adhesion issue [Unknown]
  - Application site pain [Unknown]

NARRATIVE: CASE EVENT DATE: 20220524
